FAERS Safety Report 9144403 (Version 1)
Quarter: 2013Q1

REPORT INFORMATION
  Report Type: Spontaneous
  Country: JP (occurrence: JP)
  Receive Date: 20130306
  Receipt Date: 20130306
  Transmission Date: 20140127
  Serious: Yes (Other)
  Sender: FDA-Public Use
  Company Number: JP-ROCHE-1196094

PATIENT
  Age: 64 Year
  Sex: Male
  Weight: 66 kg

DRUGS (4)
  1. RIVOTRIL [Suspect]
     Indication: INSOMNIA
     Dosage: DOSAGE IS UNCERTAIN
     Route: 048
     Dates: end: 201212
  2. GOSHUYUTO [Suspect]
     Indication: PRODUCT USED FOR UNKNOWN INDICATION
     Dosage: DOSAGE IS UNCERTAIN
     Route: 048
     Dates: start: 201204, end: 201210
  3. SAIKOKARYUKOTSUBOREITO [Suspect]
     Indication: PRODUCT USED FOR UNKNOWN INDICATION
     Dosage: DOSAGE IS UNCERTAIN
     Route: 048
     Dates: start: 201210, end: 201212
  4. URSO [Concomitant]
     Indication: LIVER DISORDER
     Dosage: DOSAGE IS UNCERTAIN.
     Route: 048
     Dates: start: 201211

REACTIONS (6)
  - Liver disorder [Recovered/Resolved]
  - Aspartate aminotransferase increased [None]
  - Alanine aminotransferase increased [None]
  - Blood alkaline phosphatase increased [None]
  - Gamma-glutamyltransferase increased [None]
  - Blood lactate dehydrogenase increased [None]
